FAERS Safety Report 10356863 (Version 1)
Quarter: 2014Q3

REPORT INFORMATION
  Report Type: Report from Study
  Country: BR (occurrence: BR)
  Receive Date: 20140801
  Receipt Date: 20140801
  Transmission Date: 20150326
  Serious: Yes (Life-Threatening, Hospitalization, Other)
  Sender: FDA-Public Use
  Company Number: PHHY2014BR093873

PATIENT
  Age: 74 Year
  Sex: Female

DRUGS (12)
  1. HYDROCHLOROTHIAZIDE. [Concomitant]
     Active Substance: HYDROCHLOROTHIAZIDE
     Indication: MICTURITION DISORDER
     Dosage: 25 MG, UNK
     Dates: start: 201310
  2. DIOVAN HCT [Suspect]
     Active Substance: HYDROCHLOROTHIAZIDE\VALSARTAN
     Indication: HYPERTENSION
     Dosage: 1 TABLET IN THE MORNING AND 1 TABLET AT NIGHT
     Route: 048
     Dates: end: 201310
  3. ATROVENT [Concomitant]
     Active Substance: IPRATROPIUM BROMIDE
     Indication: INHALATION THERAPY
     Dosage: 0.25 (2 ML), QID (4 TIMES A DAY)
     Dates: start: 201310
  4. ACLASTA [Suspect]
     Active Substance: ZOLEDRONIC ACID
     Dosage: 5 MG/100 ML, ONCE A YEAR
     Dates: start: 2010
  5. IMOSEC [Concomitant]
     Active Substance: LOPERAMIDE
     Indication: GASTROINTESTINAL DISORDER
     Dosage: 2 MG, UNK
     Dates: start: 201310
  6. ACLASTA [Suspect]
     Active Substance: ZOLEDRONIC ACID
     Indication: OSTEITIS DEFORMANS
     Dosage: 5 MG/100 ML, ONCE A YEAR
     Dates: start: 2009
  7. PANTOCAL [Concomitant]
     Indication: GASTROINTESTINAL DISORDER
     Dosage: 20 MG, UNK
     Dates: start: 201310
  8. ATENOLOL. [Concomitant]
     Active Substance: ATENOLOL
     Indication: HYPERTENSION
     Dosage: 50 MG, UNK
  9. LIPITOR [Concomitant]
     Active Substance: ATORVASTATIN CALCIUM
     Indication: DEPRESSION
     Dosage: 10 MG, UNK
     Dates: start: 201310
  10. AMLODIPINE BESYLATE. [Concomitant]
     Active Substance: AMLODIPINE BESYLATE
     Indication: HYPERTENSION
     Dosage: 5 MG, UNK
     Dates: start: 201310
  11. RIVOTRIL [Concomitant]
     Active Substance: CLONAZEPAM
     Indication: SLEEP DISORDER
     Dosage: 0.5 MG, UNK
     Dates: start: 201310
  12. EXODUS//ESCITALOPRAM OXALATE [Concomitant]
     Dosage: 10 MG, UNK
     Dates: start: 201310

REACTIONS (6)
  - Erysipelas [Recovering/Resolving]
  - Weight decreased [Recovering/Resolving]
  - Muscular weakness [Recovering/Resolving]
  - Chronic obstructive pulmonary disease [Recovering/Resolving]
  - Osteoarthritis [Recovering/Resolving]
  - Gait disturbance [Recovering/Resolving]

NARRATIVE: CASE EVENT DATE: 201310
